FAERS Safety Report 17174992 (Version 1)
Quarter: 2019Q4

REPORT INFORMATION
  Report Type: Spontaneous
  Country: US (occurrence: US)
  Receive Date: 20191126
  Receipt Date: 20191126
  Transmission Date: 20200122
  Serious: Yes (Hospitalization)
  Sender: FDA-Public Use
  Company Number: None

PATIENT
  Age: 62 Year
  Sex: Male
  Weight: 57.7 kg

DRUGS (4)
  1. ALDESLEUKIN [Suspect]
     Active Substance: ALDESLEUKIN
     Indication: PRODUCT USED FOR UNKNOWN INDICATION
     Route: 058
     Dates: start: 20181003, end: 20191116
  2. TACROLIMUS. [Concomitant]
     Active Substance: TACROLIMUS
  3. AMLODIPINE [Concomitant]
     Active Substance: AMLODIPINE BESYLATE
  4. MORPHINE [Concomitant]
     Active Substance: MORPHINE

REACTIONS (6)
  - Chills [None]
  - Anaemia [None]
  - Thrombocytopenia [None]
  - Fatigue [None]
  - Hyperhidrosis [None]
  - Pallor [None]

NARRATIVE: CASE EVENT DATE: 20191118
